FAERS Safety Report 5132974-8 (Version None)
Quarter: 2006Q4

REPORT INFORMATION
  Report Type: 
  Country: None (occurrence: None)
  Receive Date: 20061017
  Receipt Date: 20061010
  Transmission Date: 20070319
  Serious: Yes (Life-Threatening)
  Sender: FDA-Public Use
  Company Number: 2006-147031-NL

PATIENT
  Age: 67 Year
  Sex: Male

DRUGS (5)
  1. DANAPAROID SODIUM [Suspect]
     Dosage: DF
     Dates: start: 20060730, end: 20060802
  2. HEPARIN [Suspect]
     Dosage: 9000 UL.15000 UL;
     Dates: start: 20060722, end: 20060722
  3. HEPARIN [Suspect]
     Dosage: 9000 UL.15000 UL;
     Dates: start: 20060722, end: 20060730
  4. ASPIRIN [Concomitant]
  5. FUROSEMIDE [Concomitant]

REACTIONS (7)
  - CYANOSIS [None]
  - DISSEMINATED INTRAVASCULAR COAGULATION [None]
  - HEPARIN-INDUCED THROMBOCYTOPENIA [None]
  - INTESTINAL ISCHAEMIA [None]
  - PAIN [None]
  - SEPTIC SHOCK [None]
  - THROMBOSIS [None]
